FAERS Safety Report 6466341-1 (Version None)
Quarter: 2009Q4

REPORT INFORMATION
  Report Type: 
  Country: None (occurrence: None)
  Receive Date: 20091127
  Receipt Date: 20091116
  Transmission Date: 20100525
  Serious: Yes (Hospitalization)
  Sender: FDA-Public Use
  Company Number: 2009003375

PATIENT
  Age: 65 Year
  Sex: Male
  Weight: 66.2 kg

DRUGS (5)
  1. ERLOTINIB HYDROCHLORIDE [Suspect]
     Indication: OESOPHAGEAL CARCINOMA
     Dosage: (100 MG),ORAL
     Route: 048
     Dates: start: 20090924
  2. BEVACIZUMAB (INJECTION FOR INFUSION) [Suspect]
     Indication: OESOPHAGEAL CARCINOMA
     Dosage: (15 MG/KG),INTRAVENOUS
     Route: 042
     Dates: start: 20090924
  3. PACLITAXEL [Suspect]
     Indication: OESOPHAGEAL CARCINOMA
     Dosage: (200 MG/M2),INTRAVENOUS
     Route: 042
     Dates: start: 20090924
  4. FLUOROURACIL [Suspect]
     Indication: OESOPHAGEAL CARCINOMA
     Dosage: (225 MG/M2),INTRAVENOUS
     Route: 042
     Dates: start: 20090924
  5. COMPAZINE [Concomitant]

REACTIONS (2)
  - FEBRILE NEUTROPENIA [None]
  - HAEMOGLOBIN DECREASED [None]
